FAERS Safety Report 18513919 (Version 2)
Quarter: 2021Q1

REPORT INFORMATION
  Report Type: Report from Study
  Country: US (occurrence: US)
  Receive Date: 20201117
  Receipt Date: 20210212
  Transmission Date: 20210419
  Serious: Yes (Other)
  Sender: FDA-Public Use
  Company Number: US-TAKEDA-US202021247

PATIENT
  Age: 66 Year
  Sex: Female

DRUGS (1)
  1. HUMAN NORMAL IMMUNOGLOBULIN; LIQUID [Suspect]
     Active Substance: HUMAN IMMUNOGLOBULIN G
     Indication: PRIMARY IMMUNODEFICIENCY SYNDROME
     Route: 042

REACTIONS (11)
  - Blood pressure fluctuation [Unknown]
  - Sinusitis [Unknown]
  - Dyspnoea [Unknown]
  - Fatigue [Unknown]
  - Hemiplegia [Unknown]
  - Eye irritation [Unknown]
  - Infusion related reaction [Unknown]
  - Visual impairment [Unknown]
  - Concussion [Unknown]
  - Multimorbidity [Unknown]
  - Swelling [Unknown]

NARRATIVE: CASE EVENT DATE: 201911
